FAERS Safety Report 9344444 (Version 1)
Quarter: 2013Q2

REPORT INFORMATION
  Report Type: Report from Study
  Country: MX (occurrence: MX)
  Receive Date: 20130612
  Receipt Date: 20130612
  Transmission Date: 20140414
  Serious: Yes (Other)
  Sender: FDA-Public Use
  Company Number: PHHY2013MX059780

PATIENT
  Age: 61 Year
  Sex: Male

DRUGS (1)
  1. ZELMAC [Suspect]
     Dosage: 6 MG, UNK
     Route: 048

REACTIONS (1)
  - Spinal disorder [Not Recovered/Not Resolved]
